FAERS Safety Report 9810782 (Version 1)
Quarter: 2014Q1

REPORT INFORMATION
  Report Type: Spontaneous
  Country: US (occurrence: US)
  Receive Date: 20140110
  Receipt Date: 20140110
  Transmission Date: 20141002
  Serious: Yes (Hospitalization)
  Sender: FDA-Public Use
  Company Number: US-SANOFI-AVENTIS-2012SA090366

PATIENT
  Age: 67 Year
  Sex: Male
  Weight: 108.1 kg

DRUGS (7)
  1. CLOPIDOGREL BISULFATE [Suspect]
     Indication: PRODUCT USED FOR UNKNOWN INDICATION
     Route: 065
     Dates: start: 20090730, end: 20101018
  2. ASPIRIN [Suspect]
     Indication: PRODUCT USED FOR UNKNOWN INDICATION
     Route: 065
     Dates: start: 20090729, end: 20101018
  3. ATORVASTATIN [Concomitant]
     Dates: start: 20090911, end: 20101018
  4. METOPROLOL [Concomitant]
     Dates: start: 20090729, end: 20101018
  5. LEVOTHYROXINE [Concomitant]
     Dates: start: 20090730
  6. BLINDED THERAPY [Concomitant]
     Route: 048
     Dates: start: 20091012, end: 20101018
  7. BLINDED THERAPY [Concomitant]
     Dates: start: 20101101

REACTIONS (1)
  - Epistaxis [Recovered/Resolved]
